FAERS Safety Report 6454762-2 (Version None)
Quarter: 2009Q4

REPORT INFORMATION
  Report Type: 
  Country: None (occurrence: None)
  Receive Date: 20091124
  Receipt Date: 20091113
  Transmission Date: 20100525
  Serious: Yes (Hospitalization, Other)
  Sender: FDA-Public Use
  Company Number: US-WATSON-2009-09804

PATIENT
  Sex: Female

DRUGS (5)
  1. NORCO 10/325 (WATSON LABORATORIES) [Suspect]
     Indication: PAIN
     Dosage: ^ONE TO TWO EVERY FOUR HOUR AS REQUIRED FOR PAIN^
     Route: 065
  2. REBIF [Suspect]
     Indication: MULTIPLE SCLEROSIS
     Dosage: 44 MCG, 3 IN 1 WEEK
     Route: 058
     Dates: start: 20080809, end: 20081126
  3. YAZ [Suspect]
     Indication: CONTRACEPTION
     Dosage: UNK
     Route: 065
     Dates: start: 20080601, end: 20081201
  4. FLEXERIL [Suspect]
     Indication: MUSCLE SPASMS
     Dosage: 20 MG, DAILY
     Route: 048
  5. FISH OIL [Concomitant]
     Indication: DRUG USE FOR UNKNOWN INDICATION
     Dosage: UNK
     Route: 065

REACTIONS (5)
  - ABORTION INDUCED [None]
  - BACK PAIN [None]
  - CHEST PAIN [None]
  - DYSPNOEA [None]
  - PULMONARY EMBOLISM [None]
